FAERS Safety Report 6740633-0 (Version None)
Quarter: 2010Q2

REPORT INFORMATION
  Report Type: 
  Country: None (occurrence: None)
  Receive Date: 20100525
  Receipt Date: 20100519
  Transmission Date: 20101027
  Serious: Yes (Death, Other)
  Sender: FDA-Public Use
  Company Number: JP-ELI_LILLY_AND_COMPANY-JP201005005964

PATIENT
  Age: 61 Year
  Sex: Male

DRUGS (2)
  1. GEMZAR [Suspect]
     Indication: NON-SMALL CELL LUNG CANCER RECURRENT
     Dosage: UNK, UNK
     Route: 042
     Dates: start: 20050801, end: 20050101
  2. CISPLATIN [Concomitant]
     Indication: NON-SMALL CELL LUNG CANCER RECURRENT
     Dosage: UNK, UNK
     Route: 042
     Dates: start: 20050801, end: 20050101

REACTIONS (6)
  - DECREASED APPETITE [None]
  - ILEAL PERFORATION [None]
  - METASTASES TO SMALL INTESTINE [None]
  - NAUSEA [None]
  - PERITONITIS [None]
  - SEPSIS [None]
